FAERS Safety Report 6962094-9 (Version None)
Quarter: 2010Q3

REPORT INFORMATION
  Report Type: 
  Country: None (occurrence: None)
  Receive Date: 20100901
  Receipt Date: 20100901
  Transmission Date: 20110219
  Serious: Yes (Death)
  Sender: FDA-Public Use
  Company Number: None

PATIENT
  Age: 83 Year
  Sex: Female
  Weight: 54.4316 kg

DRUGS (1)
  1. ELAVIL [Suspect]
     Indication: DEPRESSION
     Dosage: 1 X PO
     Route: 048

REACTIONS (3)
  - GASTROINTESTINAL OBSTRUCTION [None]
  - GASTROINTESTINAL PAIN [None]
  - MYOCARDIAL INFARCTION [None]
